FAERS Safety Report 5728302-7 (Version None)
Quarter: 2008Q2

REPORT INFORMATION
  Report Type: 
  Country: None (occurrence: None)
  Receive Date: 20080502
  Receipt Date: 20080502
  Transmission Date: 20081010
  Serious: Yes (Other)
  Sender: FDA-Public Use
  Company Number: None

PATIENT
  Sex: Female
  Weight: 21.3191 kg

DRUGS (2)
  1. SINGULAIR [Suspect]
     Indication: HYPERSENSITIVITY
     Dosage: 1 CHEWABLE TABLE DAILY PO
     Route: 048
     Dates: start: 20050701, end: 20080201
  2. SINGULAIR [Suspect]
     Indication: SINUS DISORDER
     Dosage: 1 CHEWABLE TABLE DAILY PO
     Route: 048
     Dates: start: 20050701, end: 20080201

REACTIONS (3)
  - PERSONALITY CHANGE [None]
  - SLEEP TERROR [None]
  - STRESS [None]
